FAERS Safety Report 15833042 (Version 1)
Quarter: 2018Q4

REPORT INFORMATION
  Report Type: Spontaneous
  Country: US (occurrence: US)
  Receive Date: 20181219
  Receipt Date: 20181219
  Transmission Date: 20190205
  Serious: Yes (Other)
  Sender: FDA-Public Use
  Company Number: None

PATIENT
  Age: 31 Year
  Sex: Male

DRUGS (1)
  1. PIPERACILLIN/TAZOBACTAM [Suspect]
     Active Substance: PIPERACILLIN SODIUM\TAZOBACTAM SODIUM
     Indication: INFECTION
     Route: 042
     Dates: start: 20181013, end: 20181016

REACTIONS (5)
  - Rash [None]
  - Pyrexia [None]
  - Blood creatinine increased [None]
  - Hypersensitivity [None]
  - Dehydration [None]

NARRATIVE: CASE EVENT DATE: 20181020
